FAERS Safety Report 5717888-4 (Version None)
Quarter: 2008Q2

REPORT INFORMATION
  Report Type: 
  Country: None (occurrence: None)
  Receive Date: 20080425
  Receipt Date: 20080304
  Transmission Date: 20081010
  Serious: No
  Sender: FDA-Public Use
  Company Number: US-ABBOTT-08P-163-0441041-00

PATIENT
  Sex: Female
  Weight: 110 kg

DRUGS (4)
  1. ERYTHROMYCIN [Suspect]
     Indication: DRUG USE FOR UNKNOWN INDICATION
  2. VALSARTAN [Concomitant]
     Indication: HYPERTENSION
     Route: 048
  3. INSULIN [Concomitant]
     Indication: DIABETES MELLITUS
     Route: 058
  4. INSULIN [Concomitant]
     Route: 058

REACTIONS (3)
  - MUSCLE STRAIN [None]
  - PHOTOPSIA [None]
  - SYNCOPE [None]
